FAERS Safety Report 7280795-2 (Version None)
Quarter: 2011Q1

REPORT INFORMATION
  Report Type: 
  Country: None (occurrence: None)
  Receive Date: 20110125
  Receipt Date: 20110106
  Transmission Date: 20110831
  Serious: Yes (Life-Threatening, Disabling, Other)
  Sender: FDA-Public Use
  Company Number: 2010P1002143

PATIENT
  Age: 42 Year
  Sex: Female
  Weight: 56.6996 kg

DRUGS (4)
  1. PREV MEDS [Concomitant]
  2. CARBAMAZEPINE [Suspect]
     Dosage: 200 MG;BID;PO
     Route: 048
     Dates: start: 20080919
  3. SERTRALINE HYDROCHLORIDE [Concomitant]
  4. CLONAZEPAM [Concomitant]

REACTIONS (39)
  - PRURITUS [None]
  - SKIN DISCOLOURATION [None]
  - SKIN LESION [None]
  - SCAR [None]
  - HYPERSENSITIVITY [None]
  - PAIN [None]
  - COUGH [None]
  - HEAD INJURY [None]
  - MULTI-ORGAN DISORDER [None]
  - ANXIETY [None]
  - ANGIOEDEMA [None]
  - BACK PAIN [None]
  - ALOPECIA [None]
  - VISUAL ACUITY REDUCED [None]
  - ANHEDONIA [None]
  - UNEVALUABLE EVENT [None]
  - RASH ERYTHEMATOUS [None]
  - MUSCULOSKELETAL PAIN [None]
  - ACUTE SINUSITIS [None]
  - SKIN EXFOLIATION [None]
  - STEVENS-JOHNSON SYNDROME [None]
  - DOCUMENTED HYPERSENSITIVITY TO ADMINISTERED DRUG [None]
  - CHEMICAL INJURY [None]
  - TOXIC EPIDERMAL NECROLYSIS [None]
  - PAIN IN EXTREMITY [None]
  - URTICARIA [None]
  - SKIN SWELLING [None]
  - MENTAL DISORDER [None]
  - SPUTUM DISCOLOURED [None]
  - RASH [None]
  - BLINDNESS [None]
  - FALL [None]
  - ONYCHOMADESIS [None]
  - PIGMENTATION DISORDER [None]
  - MUCOUS MEMBRANE DISORDER [None]
  - MULTIPLE INJURIES [None]
  - ACTIVITIES OF DAILY LIVING IMPAIRED [None]
  - DEFORMITY [None]
  - TONGUE ULCERATION [None]
